FAERS Safety Report 23069093 (Version 1)
Quarter: 2023Q4

REPORT INFORMATION
  Report Type: Spontaneous
  Country: US (occurrence: None)
  Receive Date: 20231016
  Receipt Date: 20231016
  Transmission Date: 20240110
  Serious: Yes (Hospitalization)
  Sender: FDA-Public Use
  Company Number: None

PATIENT
  Sex: Male

DRUGS (1)
  1. CAPECITABINE [Suspect]
     Active Substance: CAPECITABINE
     Indication: Rectal cancer
     Dosage: OTHER FREQUENCY : 2 WKS ON, 1 WK OFF;?
     Route: 048
     Dates: start: 202307

REACTIONS (3)
  - Constipation [None]
  - Diarrhoea [None]
  - Therapy interrupted [None]
